FAERS Safety Report 10129626 (Version 1)
Quarter: 2014Q2

REPORT INFORMATION
  Report Type: Spontaneous
  Country: US (occurrence: None)
  Receive Date: 20140425
  Receipt Date: 20140425
  Transmission Date: 20141212
  Serious: Yes (Hospitalization)
  Sender: FDA-Public Use
  Company Number: None

PATIENT
  Age: 30 Year
  Sex: Female
  Weight: 54.4 kg

DRUGS (1)
  1. BACTRIM DS [Suspect]
     Indication: CELLULITIS
     Dosage: 1TAB, BID, ORAL
     Route: 048
     Dates: start: 20140412, end: 20140416

REACTIONS (5)
  - Serum sickness [None]
  - Arthralgia [None]
  - Myalgia [None]
  - Pyrexia [None]
  - Rash papular [None]
